FAERS Safety Report 10472745 (Version 2)
Quarter: 2014Q4

REPORT INFORMATION
  Report Type: Spontaneous
  Country: BR (occurrence: BR)
  Receive Date: 20140924
  Receipt Date: 20141106
  Transmission Date: 20150528
  Serious: Yes (Other)
  Sender: FDA-Public Use
  Company Number: BR-JNJFOC-20140917086

PATIENT
  Age: 63 Year
  Sex: Female

DRUGS (2)
  1. MAREVAN [Concomitant]
     Active Substance: WARFARIN SODIUM
     Route: 065
  2. SIMPONI [Suspect]
     Active Substance: GOLIMUMAB
     Indication: RHEUMATOID ARTHRITIS
     Route: 058
     Dates: start: 20140809

REACTIONS (4)
  - Secretion discharge [Recovered/Resolved]
  - Device malfunction [Unknown]
  - Suture rupture [Recovered/Resolved]
  - Drug dose omission [Unknown]

NARRATIVE: CASE EVENT DATE: 20140912
